FAERS Safety Report 23837480 (Version 1)
Quarter: 2024Q2

REPORT INFORMATION
  Report Type: Spontaneous
  Country: US (occurrence: None)
  Receive Date: 20240508
  Receipt Date: 20240508
  Transmission Date: 20240716
  Serious: Yes (Other)
  Sender: FDA-Public Use
  Company Number: None

PATIENT
  Age: 70 Year
  Sex: Female

DRUGS (1)
  1. LENALIDOMIDE [Suspect]
     Active Substance: LENALIDOMIDE
     Indication: Plasma cell myeloma in remission
     Dosage: OTHER FREQUENCY : QDFOR21DAYSON,7OFF;?

REACTIONS (4)
  - Clostridium difficile infection [None]
  - Therapy cessation [None]
  - Diarrhoea [None]
  - Blood calcium decreased [None]
